FAERS Safety Report 8923597 (Version 2)
Quarter: 2013Q1

REPORT INFORMATION
  Report Type: Spontaneous
  Country: DE (occurrence: None)
  Receive Date: 20121114
  Receipt Date: 20121119
  Transmission Date: 20140127
  Serious: Yes (Other)
  Sender: FDA-Public Use
  Company Number: 7172133

PATIENT
  Age: 9 Month
  Sex: Female

DRUGS (1)
  1. LEVOTHYROXINE [Suspect]
     Dosage: PRODUCT TAKEN BY MOTHER

REACTIONS (2)
  - Autoimmune thyroiditis [None]
  - Foetal exposure during pregnancy [None]
